FAERS Safety Report 25400052 (Version 2)
Quarter: 2025Q2

REPORT INFORMATION
  Report Type: Spontaneous
  Country: CN (occurrence: CN)
  Receive Date: 20250605
  Receipt Date: 20250612
  Transmission Date: 20250716
  Serious: Yes (Disabling, Other)
  Sender: ALKEM
  Company Number: None

PATIENT
  Age: 69 Year
  Sex: Female
  Weight: 65 kg

DRUGS (2)
  1. CEFUROXIME AXETIL [Suspect]
     Active Substance: CEFUROXIME AXETIL
     Indication: Prophylaxis
  2. CEFUROXIME AXETIL [Suspect]
     Active Substance: CEFUROXIME AXETIL

REACTIONS (6)
  - Retinal toxicity [Recovered/Resolved]
  - Retinoschisis [Recovered/Resolved]
  - Macular detachment [Recovered/Resolved]
  - Macular oedema [Recovering/Resolving]
  - Accidental overdose [Unknown]
  - Drug level increased [Unknown]
